FAERS Safety Report 5591351-6 (Version None)
Quarter: 2008Q1

REPORT INFORMATION
  Report Type: 
  Country: None (occurrence: None)
  Receive Date: 20080110
  Receipt Date: 20080110
  Transmission Date: 20080703
  Serious: Yes (Hospitalization)
  Sender: FDA-Public Use
  Company Number: None

PATIENT
  Age: 65 Year
  Sex: Female
  Weight: 101 kg

DRUGS (12)
  1. PEG-INTRON [Suspect]
     Dosage: NA
  2. FERROUS GLUCONATER [Concomitant]
  3. LASIX [Concomitant]
  4. SPIRONOLACTONE [Concomitant]
  5. BENICAR [Concomitant]
  6. PRILOSEC [Concomitant]
  7. MIRAPEX [Concomitant]
  8. FLAGYL [Concomitant]
  9. HYDROCODONE BITARTRATE + ACETAMINOPHEN [Concomitant]
  10. ASCORBIC ACID [Concomitant]
  11. SENNA GEM [Concomitant]
  12. BENZONATATE [Concomitant]

REACTIONS (1)
  - EPISTAXIS [None]
